FAERS Safety Report 23091465 (Version 1)
Quarter: 2023Q4

REPORT INFORMATION
  Report Type: Spontaneous
  Country: CA (occurrence: CA)
  Receive Date: 20231020
  Receipt Date: 20231020
  Transmission Date: 20240110
  Serious: Yes (Other)
  Sender: FDA-Public Use
  Company Number: CA-PFIZER INC-202201345913

PATIENT
  Age: 49 Year
  Sex: Female

DRUGS (8)
  1. METHOTREXATE SODIUM [Suspect]
     Active Substance: METHOTREXATE SODIUM
     Indication: Psoriatic arthropathy
     Dosage: 25 MG, WEEKLY
     Route: 048
     Dates: start: 2009
  2. ABRILADA [Concomitant]
     Active Substance: ADALIMUMAB-AFZB
     Indication: Psoriatic arthropathy
     Dosage: UNK
     Route: 058
     Dates: start: 202212
  3. ABRILADA [Concomitant]
     Active Substance: ADALIMUMAB-AFZB
     Dosage: 40 MG, 1 X 2 WEEKS, PREFILLED PEN
     Route: 058
     Dates: start: 20221206
  4. FOLIC ACID [Concomitant]
     Active Substance: FOLIC ACID
     Dosage: UNK UNK, 2X/WEEK
  5. HADLIMA [Concomitant]
     Active Substance: ADALIMUMAB-BWWD
     Dosage: UNK
     Dates: start: 202204
  6. HUMIRA [Concomitant]
     Active Substance: ADALIMUMAB
     Dosage: UNK
     Dates: start: 2012, end: 202204
  7. PLAQUENIL [Concomitant]
     Active Substance: HYDROXYCHLOROQUINE SULFATE
     Dosage: 400 MG, DAILY
     Dates: start: 2009
  8. PLAQUENIL [Concomitant]
     Active Substance: HYDROXYCHLOROQUINE SULFATE
     Dosage: 1 DF, 400 MG DIE
     Dates: start: 2009

REACTIONS (5)
  - Arthralgia [Not Recovered/Not Resolved]
  - Uveitis [Unknown]
  - Drug ineffective [Unknown]
  - Synovitis [Recovered/Resolved]
  - Off label use [Unknown]
